FAERS Safety Report 7942605-7 (Version None)
Quarter: 2011Q4

REPORT INFORMATION
  Report Type: 
  Country: None (occurrence: None)
  Receive Date: 20111122
  Receipt Date: 20110718
  Transmission Date: 20120403
  Serious: Yes (Other)
  Sender: FDA-Public Use
  Company Number: PHHY2011US34910

PATIENT
  Age: 56 Year
  Sex: Male

DRUGS (3)
  1. XANAX (ALPRAZOLAM) -/-/1998 TO ONGOING [Concomitant]
  2. GILENYA [Suspect]
     Indication: RELAPSING-REMITTING MULTIPLE SCLEROSIS
     Dosage: 0.5 MG, QD, ORAL
     Route: 048
     Dates: start: 20110419, end: 20110429
  3. METHOCARBAMOL (METHOCARBAMOL) -/-/1998 TO ONGOING [Concomitant]

REACTIONS (9)
  - PARAESTHESIA [None]
  - HEADACHE [None]
  - BLISTER [None]
  - BACK PAIN [None]
  - HERPES ZOSTER [None]
  - PAIN [None]
  - RASH [None]
  - FLANK PAIN [None]
  - HYPOAESTHESIA [None]
